FAERS Safety Report 13268823 (Version 7)
Quarter: 2017Q3

REPORT INFORMATION
  Report Type: Spontaneous
  Country: KR (occurrence: KR)
  Receive Date: 20170224
  Receipt Date: 20170912
  Transmission Date: 20171127
  Serious: Yes (Hospitalization, Other)
  Sender: FDA-Public Use
  Company Number: KR-009507513-1702KOR009710

PATIENT
  Age: 54 Year
  Sex: Female
  Weight: 66.4 kg

DRUGS (34)
  1. EMEND (FOSAPREPITANT DIMEGLUMINE) [Suspect]
     Active Substance: FOSAPREPITANT DIMEGLUMINE
     Dosage: 150 MG, ONCE
     Route: 042
     Dates: start: 20161101, end: 20161101
  2. ADRIAMYCIN [Concomitant]
     Active Substance: DOXORUBICIN HYDROCHLORIDE
     Dosage: 86 MG, ONCE, CYCLE 2
     Route: 042
     Dates: start: 20161101, end: 20161101
  3. VINCRISTINE SULFATE. [Concomitant]
     Active Substance: VINCRISTINE SULFATE
     Dosage: 2 MG, ONCE, CYCLE 2
     Route: 042
     Dates: start: 20161101, end: 20161101
  4. CYTOSAR U [Concomitant]
     Indication: CHEMOTHERAPY
     Dosage: 40 MG, ONCE, CYCLE 1
     Route: 042
     Dates: start: 20161010, end: 20161010
  5. CORTISOLU [Concomitant]
     Active Substance: HYDROCORTISONE SODIUM SUCCINATE
     Dosage: 100 MG, QD
     Route: 042
     Dates: start: 20161112, end: 20161116
  6. SOLONDO [Concomitant]
     Active Substance: PREDNISOLONE
     Dosage: 100 MG, QD
     Route: 048
     Dates: start: 20161121, end: 20161124
  7. ALOXI [Concomitant]
     Active Substance: PALONOSETRON HYDROCHLORIDE
     Indication: ANTIEMETIC SUPPORTIVE CARE
     Dosage: 0.25 MG, ONCE
     Route: 042
     Dates: start: 20161007, end: 20161007
  8. ALOXI [Concomitant]
     Active Substance: PALONOSETRON HYDROCHLORIDE
     Dosage: 0.25 MG, ONCE
     Route: 042
     Dates: start: 20161101, end: 20161101
  9. ZYLORIC [Concomitant]
     Active Substance: ALLOPURINOL
     Dosage: 100 MG, TID
     Route: 048
     Dates: start: 20161121, end: 20161123
  10. NEULASTA [Concomitant]
     Active Substance: PEGFILGRASTIM
     Dosage: 6 MG, ONCE
     Route: 058
     Dates: start: 20161101, end: 20161101
  11. EMEND (FOSAPREPITANT DIMEGLUMINE) [Suspect]
     Active Substance: FOSAPREPITANT DIMEGLUMINE
     Indication: PROPHYLAXIS OF NAUSEA AND VOMITING
     Dosage: 150 MG, ONCE
     Dates: start: 20161007, end: 20161007
  12. ENDOXAN [Concomitant]
     Active Substance: CYCLOPHOSPHAMIDE
     Dosage: 1290 MG, ONCE, CYCLE 2
     Route: 042
     Dates: start: 20161101, end: 20161101
  13. CYTOSAR U [Concomitant]
     Dosage: 40 MG, ONCE, CYCLE 2
     Route: 042
     Dates: start: 20161102, end: 20161102
  14. METHOTREXATE. [Concomitant]
     Active Substance: METHOTREXATE
     Indication: CHEMOTHERAPY
     Dosage: 12 MG, ONCE, CYCLE 1
     Route: 042
     Dates: start: 20161010, end: 20161010
  15. CORTISOLU [Concomitant]
     Active Substance: HYDROCORTISONE SODIUM SUCCINATE
     Indication: ANTIEMETIC SUPPORTIVE CARE
     Dosage: 50 MG, ONCE
     Route: 042
     Dates: start: 20161010, end: 20161010
  16. CRAVIT [Concomitant]
     Active Substance: LEVOFLOXACIN
     Indication: PROPHYLAXIS
     Dosage: 100 MG, TID
     Route: 048
     Dates: start: 20161007, end: 20161009
  17. ADRIAMYCIN [Concomitant]
     Active Substance: DOXORUBICIN HYDROCHLORIDE
     Indication: CHEMOTHERAPY
     Dosage: 85.5 MG, ONCE, CYCLE 1
     Route: 042
     Dates: start: 20161007, end: 20161007
  18. ADRIAMYCIN [Concomitant]
     Active Substance: DOXORUBICIN HYDROCHLORIDE
     Dosage: 82.5 MG, ONCE, CYCLE 3
     Route: 042
     Dates: start: 20161121, end: 20161121
  19. VINCRISTINE SULFATE. [Concomitant]
     Active Substance: VINCRISTINE SULFATE
     Dosage: 2 MG, ONCE, CYCLE 3
     Route: 042
     Dates: start: 20161121, end: 20161121
  20. METHOTREXATE. [Concomitant]
     Active Substance: METHOTREXATE
     Dosage: 12 MG, ONCE, CYCLE 2
     Route: 042
     Dates: start: 20161102, end: 20161102
  21. CORTISOLU [Concomitant]
     Active Substance: HYDROCORTISONE SODIUM SUCCINATE
     Indication: PROPHYLAXIS OF NAUSEA AND VOMITING
     Dosage: 50 MG, ONCE
     Route: 042
     Dates: start: 20161102, end: 20161102
  22. SOLONDO [Concomitant]
     Active Substance: PREDNISOLONE
     Dosage: 100 MG, QD
     Route: 048
     Dates: start: 20161101, end: 20161105
  23. ZYLORIC [Concomitant]
     Active Substance: ALLOPURINOL
     Dosage: 200 MG, TID
     Route: 048
     Dates: start: 20161124, end: 20161124
  24. EMEND (FOSAPREPITANT DIMEGLUMINE) [Suspect]
     Active Substance: FOSAPREPITANT DIMEGLUMINE
     Dosage: 150 MG, ONCE
     Route: 042
     Dates: start: 20161121, end: 20161121
  25. VINCRISTINE SULFATE. [Concomitant]
     Active Substance: VINCRISTINE SULFATE
     Indication: CHEMOTHERAPY
     Dosage: 2 MG, ONCE, CYCLE 1
     Route: 042
     Dates: start: 20161007, end: 20161007
  26. ZYLORIC [Concomitant]
     Active Substance: ALLOPURINOL
     Indication: PROPHYLAXIS
     Dosage: 100 MG
     Route: 048
     Dates: start: 20161007, end: 20161013
  27. ZYLORIC [Concomitant]
     Active Substance: ALLOPURINOL
     Dosage: 100 MG
     Route: 048
     Dates: start: 20161101, end: 20161107
  28. STILNOX [Concomitant]
     Active Substance: ZOLPIDEM TARTRATE
     Indication: PROPHYLAXIS
     Dosage: 10 MG, QD
     Route: 048
     Dates: start: 20161007
  29. ENDOXAN [Concomitant]
     Active Substance: CYCLOPHOSPHAMIDE
     Indication: CHEMOTHERAPY
     Dosage: 1282.5 MG, ONCE, CYCLE 1
     Route: 042
     Dates: start: 20161007, end: 20161007
  30. ENDOXAN [Concomitant]
     Active Substance: CYCLOPHOSPHAMIDE
     Dosage: 1237.5 MG, ONCE, CYCLE 3
     Route: 042
     Dates: start: 20161121, end: 20161121
  31. SOLONDO [Concomitant]
     Active Substance: PREDNISOLONE
     Indication: ANTIEMETIC SUPPORTIVE CARE
     Dosage: 100 MG, QD
     Route: 048
     Dates: start: 20161007, end: 20161011
  32. PARIET [Concomitant]
     Active Substance: RABEPRAZOLE SODIUM
     Indication: PROPHYLAXIS AGAINST GASTROINTESTINAL ULCER
     Dosage: 10 MG, QD
     Route: 048
     Dates: start: 20161007
  33. NEULASTA [Concomitant]
     Active Substance: PEGFILGRASTIM
     Indication: PROPHYLAXIS
     Dosage: 6 MG, ONCE
     Route: 058
     Dates: start: 20161007, end: 20161007
  34. NEULASTA [Concomitant]
     Active Substance: PEGFILGRASTIM
     Dosage: 6 MG, ONCE
     Route: 058
     Dates: start: 20161122, end: 20161122

REACTIONS (7)
  - Febrile neutropenia [Recovered/Resolved]
  - Hepatic enzyme increased [Recovered/Resolved]
  - Insomnia [Recovering/Resolving]
  - Sepsis [Recovered/Resolved]
  - Pain in extremity [Recovered/Resolved]
  - Neutropenia [Recovered/Resolved]
  - Diarrhoea [Recovered/Resolved]

NARRATIVE: CASE EVENT DATE: 20161012
